FAERS Safety Report 13135728 (Version 2)
Quarter: 2017Q1

REPORT INFORMATION
  Report Type: Spontaneous
  Country: US (occurrence: US)
  Receive Date: 20170120
  Receipt Date: 20170218
  Transmission Date: 20170428
  Serious: Yes (Other)
  Sender: FDA-Public Use
  Company Number: US-ALLERGAN-1679732US

PATIENT
  Age: 88 Year
  Sex: Female

DRUGS (2)
  1. RESTASIS [Suspect]
     Active Substance: CYCLOSPORINE
     Indication: DRY EYE
     Dosage: 2 GTT, BID
     Route: 047
     Dates: start: 2006
  2. SIMILASAN FOR INFLAMMATION OF THE MOUTH AND THROAT [Concomitant]
     Active Substance: HOMEOPATHICS
     Indication: PRODUCT USED FOR UNKNOWN INDICATION
     Route: 047

REACTIONS (3)
  - Visual acuity reduced [Not Recovered/Not Resolved]
  - Macular degeneration [Not Recovered/Not Resolved]
  - Eye irritation [Not Recovered/Not Resolved]

NARRATIVE: CASE EVENT DATE: 201608
